FAERS Safety Report 8337091-1 (Version None)
Quarter: 2012Q2

REPORT INFORMATION
  Report Type: 
  Country: None (occurrence: None)
  Receive Date: 20120504
  Receipt Date: 20120423
  Transmission Date: 20120825
  Serious: Yes (Hospitalization)
  Sender: FDA-Public Use
  Company Number: PHHY2012ES034932

PATIENT
  Age: 72 Year
  Sex: Female

DRUGS (1)
  1. TASIGNA [Suspect]
     Indication: CHRONIC MYELOID LEUKAEMIA
     Dosage: 400 MG, BID

REACTIONS (5)
  - ABDOMINAL TENDERNESS [None]
  - ABDOMINAL DISTENSION [None]
  - PANCREATITIS [None]
  - ABDOMINAL PAIN [None]
  - BLOOD CALCIUM DECREASED [None]
